FAERS Safety Report 22158078 (Version 6)
Quarter: 2024Q2

REPORT INFORMATION
  Report Type: Report from Study
  Country: JP (occurrence: JP)
  Receive Date: 20230330
  Receipt Date: 20240610
  Transmission Date: 20240716
  Serious: Yes (Hospitalization)
  Sender: FDA-Public Use
  Company Number: JP-TAKEDA-2021TJP119308

PATIENT
  Age: 9 Year
  Sex: Male
  Weight: 22.1 kg

DRUGS (43)
  1. TEDUGLUTIDE [Suspect]
     Active Substance: TEDUGLUTIDE
     Indication: Short-bowel syndrome
     Dosage: 0.05 MILLIGRAM/KILOGRAM, QD
     Route: 058
     Dates: start: 20211108, end: 20220913
  2. TEDUGLUTIDE [Suspect]
     Active Substance: TEDUGLUTIDE
     Indication: Short-bowel syndrome
     Dosage: 0.05 MILLIGRAM/KILOGRAM, QD
     Route: 058
     Dates: start: 20211108, end: 20220913
  3. TEDUGLUTIDE [Suspect]
     Active Substance: TEDUGLUTIDE
     Indication: Short-bowel syndrome
     Dosage: 0.05 MILLIGRAM/KILOGRAM, QD
     Route: 058
     Dates: start: 20211108, end: 20220913
  4. TEDUGLUTIDE [Suspect]
     Active Substance: TEDUGLUTIDE
     Indication: Short-bowel syndrome
     Dosage: 0.05 MILLIGRAM/KILOGRAM, QD
     Route: 058
     Dates: start: 20211108, end: 20220913
  5. TEDUGLUTIDE [Suspect]
     Active Substance: TEDUGLUTIDE
     Dosage: 0.05 MILLIGRAM/KILOGRAM, QD
     Route: 058
     Dates: start: 20220919, end: 20230605
  6. TEDUGLUTIDE [Suspect]
     Active Substance: TEDUGLUTIDE
     Dosage: 0.05 MILLIGRAM/KILOGRAM, QD
     Route: 058
     Dates: start: 20220919, end: 20230605
  7. TEDUGLUTIDE [Suspect]
     Active Substance: TEDUGLUTIDE
     Dosage: 0.05 MILLIGRAM/KILOGRAM, QD
     Route: 058
     Dates: start: 20220919, end: 20230605
  8. TEDUGLUTIDE [Suspect]
     Active Substance: TEDUGLUTIDE
     Dosage: 0.05 MILLIGRAM/KILOGRAM, QD
     Route: 058
     Dates: start: 20220919, end: 20230605
  9. TEDUGLUTIDE [Suspect]
     Active Substance: TEDUGLUTIDE
     Dosage: 0.05 MILLIGRAM/KILOGRAM
     Route: 058
     Dates: start: 20231109
  10. TEDUGLUTIDE [Suspect]
     Active Substance: TEDUGLUTIDE
     Dosage: 0.05 MILLIGRAM/KILOGRAM
     Route: 058
     Dates: start: 20231109
  11. TEDUGLUTIDE [Suspect]
     Active Substance: TEDUGLUTIDE
     Dosage: 0.05 MILLIGRAM/KILOGRAM
     Route: 058
     Dates: start: 20231109
  12. TEDUGLUTIDE [Suspect]
     Active Substance: TEDUGLUTIDE
     Dosage: 0.05 MILLIGRAM/KILOGRAM
     Route: 058
     Dates: start: 20231109
  13. MIYA-BM [Concomitant]
     Active Substance: CLOSTRIDIUM BUTYRICUM SPORES STRAIN M-55
     Indication: Short-bowel syndrome
     Dosage: UNK
     Route: 065
  14. MIYA-BM [Concomitant]
     Active Substance: CLOSTRIDIUM BUTYRICUM SPORES STRAIN M-55
     Indication: Diarrhoea
     Dosage: 0.25 GRAM, TID
     Route: 065
  15. AMINO ACIDS\DEXTROSE\ELECTROLYTES NOS\SOYBEAN OIL\VITAMINS [Concomitant]
     Active Substance: AMINO ACIDS\DEXTROSE\ELECTROLYTES NOS\SOYBEAN OIL\VITAMINS
     Indication: Short-bowel syndrome
     Dosage: UNK
     Route: 065
  16. AMINO ACIDS\DEXTROSE\ELECTROLYTES NOS\SOYBEAN OIL\VITAMINS [Concomitant]
     Active Substance: AMINO ACIDS\DEXTROSE\ELECTROLYTES NOS\SOYBEAN OIL\VITAMINS
     Indication: Feeding disorder
     Dosage: 1.5 DOSAGE FORM, BID
     Route: 065
  17. ZINC [Concomitant]
     Active Substance: PYRITHIONE ZINC\ZINC\ZINC CHLORIDE
     Indication: Short-bowel syndrome
     Dosage: UNK
     Route: 065
  18. ZINC [Concomitant]
     Active Substance: PYRITHIONE ZINC\ZINC\ZINC CHLORIDE
     Indication: Hypozincaemia
     Dosage: 25 MILLIGRAM, BID
     Route: 065
  19. URSO [Concomitant]
     Active Substance: URSODIOL
     Indication: Short-bowel syndrome
     Dosage: UNK
     Route: 065
  20. URSO [Concomitant]
     Active Substance: URSODIOL
     Indication: Cholestasis
     Dosage: 30 MILLIGRAM, TID
     Route: 065
  21. SODIUM FERROUS CITRATE [Concomitant]
     Active Substance: SODIUM FERROUS CITRATE
     Indication: Short-bowel syndrome
     Dosage: UNK
     Route: 065
  22. SODIUM CHLORIDE [Concomitant]
     Active Substance: SODIUM CHLORIDE
     Indication: Short-bowel syndrome
     Dosage: UNK
     Route: 065
  23. PN-TWIN NO. 2 [Concomitant]
     Indication: Short-bowel syndrome
     Dosage: UNK
     Route: 065
  24. CYANOCOBALAMIN\PYRIDOXAMINE HYDROCHLORIDE\THIAMINE HYDROCHLORIDE [Concomitant]
     Active Substance: CYANOCOBALAMIN\PYRIDOXAMINE HYDROCHLORIDE\THIAMINE HYDROCHLORIDE
     Indication: Short-bowel syndrome
     Dosage: UNK
     Route: 065
  25. MINERIC 5 [Concomitant]
     Indication: Short-bowel syndrome
     Dosage: UNK
     Route: 065
  26. HEPARIN SODIUM [Concomitant]
     Active Substance: HEPARIN SODIUM
     Indication: Short-bowel syndrome
     Dosage: UNK
     Route: 065
  27. SOYBEAN OIL [Concomitant]
     Active Substance: SOYBEAN OIL
     Indication: Short-bowel syndrome
     Dosage: UNK
     Route: 065
  28. AMINO ACIDS\DEXTROSE\ELECTROLYTES NOS\MINERALS\VITAMINS [Concomitant]
     Active Substance: AMINO ACIDS\DEXTROSE\ELECTROLYTES NOS\MINERALS\VITAMINS
     Indication: Short-bowel syndrome
     Dosage: UNK
     Route: 065
  29. GLYCOSAMINOGLYCANS [Concomitant]
     Active Substance: GLYCOSAMINOGLYCANS
     Dosage: UNK
     Route: 065
  30. LIDOCAINE [Concomitant]
     Active Substance: LIDOCAINE
     Dosage: UNK
     Route: 065
  31. AZUNOL [Concomitant]
     Dosage: UNK
     Route: 065
  32. POLARAMINE [Concomitant]
     Active Substance: DEXCHLORPHENIRAMINE MALEATE
     Dosage: UNK
     Route: 065
  33. SOLACET D [Concomitant]
     Indication: Short-bowel syndrome
     Dosage: UNK
     Route: 065
  34. PARAFFIN [Concomitant]
     Active Substance: PARAFFIN
     Dosage: UNK
     Route: 065
  35. CEFMETAZOLE [Concomitant]
     Active Substance: CEFMETAZOLE
     Dosage: UNK
     Route: 065
  36. GASTER [Concomitant]
     Active Substance: FAMOTIDINE
     Dosage: UNK
     Route: 065
  37. UROKINASE [Concomitant]
     Active Substance: UROKINASE
     Dosage: UNK
     Route: 065
  38. PROPOFOL [Concomitant]
     Active Substance: PROPOFOL
     Dosage: UNK
     Route: 065
  39. REMIFENTANIL [Concomitant]
     Active Substance: REMIFENTANIL
     Dosage: UNK
     Route: 065
  40. FENTANYL [Concomitant]
     Active Substance: FENTANYL\FENTANYL CITRATE
     Dosage: UNK
     Route: 065
  41. ROCURONIUM BROMIDE [Concomitant]
     Active Substance: ROCURONIUM BROMIDE
     Dosage: UNK
     Route: 065
  42. ATROPINE SULFATE [Concomitant]
     Active Substance: ATROPINE SULFATE
     Dosage: UNK
     Route: 065
  43. BRIDION [Concomitant]
     Active Substance: SUGAMMADEX
     Dosage: UNK
     Route: 065

REACTIONS (4)
  - Central venous catheterisation [Recovered/Resolved]
  - Cholelithiasis [Not Recovered/Not Resolved]
  - Miliaria [Recovering/Resolving]
  - Puncture site bruise [Recovered/Resolved]

NARRATIVE: CASE EVENT DATE: 20211115
